FAERS Safety Report 5419565-6 (Version None)
Quarter: 2007Q3

REPORT INFORMATION
  Report Type: 
  Country: None (occurrence: None)
  Receive Date: 20070820
  Receipt Date: 20070814
  Transmission Date: 20080115
  Serious: Yes (Hospitalization)
  Sender: FDA-Public Use
  Company Number: FR-AVENTIS-200712602FR

PATIENT
  Age: 73 Year
  Sex: Male

DRUGS (1)
  1. KETEK [Suspect]
     Indication: BRONCHITIS PNEUMOCOCCAL
     Dates: start: 20070719, end: 20070724

REACTIONS (2)
  - BLOOD ALKALINE PHOSPHATASE INCREASED [None]
  - GAMMA-GLUTAMYLTRANSFERASE INCREASED [None]
